FAERS Safety Report 6289382-6 (Version None)
Quarter: 2009Q3

REPORT INFORMATION
  Report Type: 
  Country: None (occurrence: None)
  Receive Date: 20090728
  Receipt Date: 20090728
  Transmission Date: 20100115
  Serious: Yes (Hospitalization)
  Sender: FDA-Public Use
  Company Number: None

PATIENT
  Age: 30 Year
  Sex: Female

DRUGS (1)
  1. CERTOLIZUMAB [Suspect]
     Indication: CROHN'S DISEASE
     Dosage: WEEKLY IV
     Route: 042

REACTIONS (2)
  - INFLUENZA [None]
  - PNEUMONIA [None]
